FAERS Safety Report 5296644-8 (Version None)
Quarter: 2007Q2

REPORT INFORMATION
  Report Type: 
  Country: None (occurrence: None)
  Receive Date: 20070413
  Receipt Date: 20070404
  Transmission Date: 20071010
  Serious: Yes (Congenital Anomaly)
  Sender: FDA-Public Use
  Company Number: GB-ABBOTT-06P-167-0326349-00

PATIENT
  Sex: Male
  Weight: 3.37 kg

DRUGS (5)
  1. KALETRA [Suspect]
     Indication: DRUG EXPOSURE DURING PREGNANCY
  2. TENOFOVIR [Suspect]
     Indication: DRUG EXPOSURE DURING PREGNANCY
  3. ZIDOVUDINE W/LAMIVUDINE [Suspect]
     Indication: DRUG EXPOSURE DURING PREGNANCY
  4. NELFINAVIR MESILATE [Suspect]
     Indication: DRUG EXPOSURE DURING PREGNANCY
  5. ZIDOVUDINE [Suspect]
     Indication: DRUG EXPOSURE DURING PREGNANCY

REACTIONS (5)
  - ABDOMINAL DISTENSION [None]
  - ABDOMINAL HERNIA [None]
  - CARDIAC MURMUR [None]
  - CONGENITAL ANOMALY [None]
  - CRYPTORCHISM [None]
